FAERS Safety Report 25509627 (Version 2)
Quarter: 2025Q3

REPORT INFORMATION
  Report Type: Report from Study
  Country: US (occurrence: US)
  Receive Date: 20250703
  Receipt Date: 20250909
  Transmission Date: 20251020
  Serious: Yes (Other)
  Sender: NOVARTIS
  Company Number: US-002147023-NVSC2025US025871

PATIENT
  Sex: Female

DRUGS (1)
  1. KESIMPTA [Suspect]
     Active Substance: OFATUMUMAB
     Indication: Product used for unknown indication
     Route: 065

REACTIONS (11)
  - Myocardial infarction [Unknown]
  - Chest pain [Unknown]
  - Pain [Unknown]
  - Neck pain [Unknown]
  - Arthralgia [Unknown]
  - Sensory disturbance [Unknown]
  - Memory impairment [Unknown]
  - White blood cell count decreased [Unknown]
  - Anxiety [Unknown]
  - Fatigue [Unknown]
  - Headache [Unknown]
